FAERS Safety Report 5214221-1 (Version None)
Quarter: 2007Q1

REPORT INFORMATION
  Report Type: 
  Country: None (occurrence: None)
  Receive Date: 20070122
  Receipt Date: 20070111
  Transmission Date: 20070707
  Serious: Yes (Other)
  Sender: FDA-Public Use
  Company Number: 2007GB00057

PATIENT
  Age: 53 Year
  Sex: Male
  Weight: 68 kg

DRUGS (7)
  1. OMEPRAZOLE [Suspect]
     Indication: GASTROOESOPHAGEAL REFLUX DISEASE
     Route: 048
     Dates: start: 20060626
  2. OMEPRAZOLE [Interacting]
     Route: 048
     Dates: end: 20061213
  3. LOSARTAN POTASSIUM [Interacting]
     Indication: HYPERTENSION
     Route: 048
     Dates: start: 20050512
  4. LOSARTAN POTASSIUM [Interacting]
     Dosage: DOSE REDUCED
     Route: 048
  5. LOSARTAN POTASSIUM [Interacting]
     Dosage: DOSE INCREASED
     Route: 048
  6. PARACETAMOL [Concomitant]
     Indication: OSTEOARTHRITIS
     Route: 048
     Dates: start: 20030601
  7. TOLBUTAMIDE [Concomitant]
     Indication: DIABETES MELLITUS
     Route: 048
     Dates: start: 20040401

REACTIONS (4)
  - DIZZINESS [None]
  - DRUG INTERACTION [None]
  - FALL [None]
  - HYPOTENSION [None]
